FAERS Safety Report 7383943-9 (Version None)
Quarter: 2011Q1

REPORT INFORMATION
  Report Type: 
  Country: None (occurrence: None)
  Receive Date: 20110330
  Receipt Date: 20110325
  Transmission Date: 20110831
  Serious: Yes (Disabling, Other)
  Sender: FDA-Public Use
  Company Number: US-PFIZER INC-2011004857

PATIENT
  Sex: Female
  Weight: 52.154 kg

DRUGS (5)
  1. EVISTA [Concomitant]
     Indication: BONE DENSITY ABNORMAL
     Dosage: 60 MG, 1X/DAY
     Route: 048
  2. ZOCOR [Concomitant]
     Indication: PROPHYLAXIS
     Dosage: 10 MG EVERY OTHER DAY
     Route: 048
  3. XALATAN [Suspect]
     Indication: GLAUCOMA
     Dosage: 1 GTT, 2X/DAY
     Route: 047
     Dates: start: 20090507
  4. ISORDIL [Concomitant]
     Indication: CARDIOVASCULAR DISORDER
     Dosage: HALF PILL TWO TIMES A DAY
     Route: 048
  5. ATIVAN [Concomitant]
     Indication: INSOMNIA
     Dosage: UNK
     Route: 048

REACTIONS (3)
  - BLINDNESS UNILATERAL [None]
  - RETINAL VEIN OCCLUSION [None]
  - VISION BLURRED [None]
